FAERS Safety Report 6616319-X (Version None)
Quarter: 2010Q1

REPORT INFORMATION
  Report Type: 
  Country: None (occurrence: None)
  Receive Date: 20100305
  Receipt Date: 20100301
  Transmission Date: 20100710
  Serious: Yes (Other)
  Sender: FDA-Public Use
  Company Number: RU-ROCHE-688506

PATIENT
  Age: 12 Year
  Sex: Female

DRUGS (1)
  1. TOCILIZUMAB [Suspect]
     Route: 042
     Dates: start: 20100101

REACTIONS (3)
  - ANGIOEDEMA [None]
  - PRURITUS [None]
  - URTICARIA [None]
